FAERS Safety Report 12812563 (Version 1)
Quarter: 2016Q4

REPORT INFORMATION
  Report Type: Spontaneous
  Country: SK (occurrence: SK)
  Receive Date: 20161005
  Receipt Date: 20161005
  Transmission Date: 20170207
  Serious: Yes (Death, Hospitalization, Other)
  Sender: FDA-Public Use
  Company Number: SK-SCIEGEN PHARMACEUTICALS INC-2016SCILIT00454

PATIENT
  Age: 63 Year

DRUGS (1)
  1. METFORMIN HYDROCHLORIDE TABLETS, USP [Suspect]
     Active Substance: METFORMIN HYDROCHLORIDE
     Indication: DIABETES MELLITUS
     Dosage: 1000 MG, BID
     Route: 065

REACTIONS (6)
  - Diarrhoea [Unknown]
  - Cognitive disorder [Unknown]
  - Lactic acidosis [Fatal]
  - Vomiting [Unknown]
  - Cardiac failure [None]
  - Dyspepsia [Unknown]
